FAERS Safety Report 10076950 (Version 2)
Quarter: 2014Q2

REPORT INFORMATION
  Report Type: Spontaneous
  Country: JP (occurrence: JP)
  Receive Date: 20140414
  Receipt Date: 20140425
  Transmission Date: 20141212
  Serious: Yes (Other)
  Sender: FDA-Public Use
  Company Number: JP-GLAXOSMITHKLINE-B0985210A

PATIENT
  Sex: 0

DRUGS (1)
  1. VOTRIENT 200MG [Suspect]
     Indication: SOFT TISSUE SARCOMA
     Dosage: 200MG PER DAY
     Route: 048
     Dates: end: 201403

REACTIONS (2)
  - Bone marrow failure [Unknown]
  - Hepatic function abnormal [Recovered/Resolved]
